APPROVED DRUG PRODUCT: DEFERASIROX
Active Ingredient: DEFERASIROX
Strength: 500MG
Dosage Form/Route: TABLET, FOR SUSPENSION;ORAL
Application: A208882 | Product #003
Applicant: ZYDUS PHARMACEUTICALS USA INC
Approved: May 5, 2020 | RLD: No | RS: No | Type: DISCN